FAERS Safety Report 11855336 (Version 1)
Quarter: 2015Q4

REPORT INFORMATION
  Report Type: Report from Study
  Country: IT (occurrence: IT)
  Receive Date: 20151221
  Receipt Date: 20151221
  Transmission Date: 20160305
  Serious: Yes (Other)
  Sender: FDA-Public Use
  Company Number: PHHY2015IT166269

PATIENT
  Age: 40 Year
  Sex: Female

DRUGS (1)
  1. GLIVEC [Suspect]
     Active Substance: IMATINIB MESYLATE
     Indication: PRODUCT USED FOR UNKNOWN INDICATION
     Route: 065

REACTIONS (10)
  - Nausea [Unknown]
  - Abdominal pain upper [Unknown]
  - Maternal exposure during pregnancy [Unknown]
  - Peripheral swelling [Unknown]
  - Menstrual disorder [Unknown]
  - Muscle spasms [Unknown]
  - Pain in extremity [Unknown]
  - Vomiting [Unknown]
  - Thyroid cancer [Unknown]
  - Asthenia [Unknown]
